FAERS Safety Report 10095470 (Version 1)
Quarter: 2014Q2

REPORT INFORMATION
  Report Type: Spontaneous
  Country: CA (occurrence: CA)
  Receive Date: 20140422
  Receipt Date: 20140422
  Transmission Date: 20141212
  Serious: Yes (Other)
  Sender: FDA-Public Use
  Company Number: CA-TEVA-476779USA

PATIENT
  Sex: Male

DRUGS (1)
  1. NAPROXEN [Suspect]
     Indication: TOOTH DISORDER
     Dosage: 2 PILLS

REACTIONS (4)
  - Respiratory arrest [Unknown]
  - Choking [Unknown]
  - Foreign body [Unknown]
  - Product quality issue [Unknown]
